FAERS Safety Report 6250213-1 (Version None)
Quarter: 2009Q2

REPORT INFORMATION
  Report Type: 
  Country: None (occurrence: None)
  Receive Date: 20090630
  Receipt Date: 20071023
  Transmission Date: 20091009
  Serious: Yes (Other)
  Sender: FDA-Public Use
  Company Number: US-ASTRAZENECA-2007UW19467

PATIENT
  Age: 17068 Day
  Sex: Female
  Weight: 83.8 kg

DRUGS (28)
  1. SEROQUEL [Suspect]
     Indication: BIPOLAR DISORDER
     Route: 048
  2. SEROQUEL [Suspect]
     Indication: SCHIZOPHRENIA
     Route: 048
  3. SEROQUEL [Suspect]
     Indication: DEPRESSION
     Route: 048
  4. SEROQUEL [Suspect]
     Dosage: 100-800 MG
     Route: 048
     Dates: start: 20020924
  5. SEROQUEL [Suspect]
     Dosage: 100-800 MG
     Route: 048
     Dates: start: 20020924
  6. SEROQUEL [Suspect]
     Dosage: 100-800 MG
     Route: 048
     Dates: start: 20020924
  7. TOPAMAX [Suspect]
     Indication: AFFECTIVE DISORDER
     Dosage: 150 MG, DAILY
     Dates: start: 20051221
  8. TOPAMAX [Suspect]
     Indication: MIGRAINE
     Dosage: 150 MG, DAILY
     Dates: start: 20051221
  9. RISPERDAL [Concomitant]
  10. ZYPREXA [Concomitant]
  11. HYDROCHLOROTHIAZIDE [Concomitant]
     Dates: start: 20050314
  12. MEPERIDINE HCL [Concomitant]
     Dates: start: 20051101
  13. HYDROXYZINE PAM [Concomitant]
     Dates: start: 20051123
  14. AMBIEN [Concomitant]
     Dates: start: 20051123
  15. PROTONIX [Concomitant]
     Dates: start: 20051123
  16. BENICAR [Concomitant]
     Indication: HYPERTENSION
     Dosage: 40 MG, HALF TABLET
     Dates: start: 20051201
  17. GLUCOPHAGE [Concomitant]
     Dosage: 500 MG, ONCE OR TWICE DAILY
     Dates: start: 20051201
  18. TRILEPTAL [Concomitant]
     Indication: AFFECTIVE DISORDER
     Dosage: 300-600 MG
     Dates: start: 20051201
  19. KLONOPIN [Concomitant]
     Indication: AFFECTIVE DISORDER
     Dosage: 0.5-1 MG, AT NIGHT
     Dates: start: 20051201
  20. KLONOPIN [Concomitant]
     Indication: RESTLESS LEGS SYNDROME
     Dosage: 0.5-1 MG, AT NIGHT
     Dates: start: 20051201
  21. BENZTROPINE MES [Concomitant]
     Dates: start: 20051221
  22. LEXAPRO [Concomitant]
     Indication: AFFECTIVE DISORDER
     Dosage: 5-200 MG, DAILY
     Dates: start: 20060110
  23. OXYCODONE AND ACETAMINOPHEN [Concomitant]
     Dosage: 5
     Dates: start: 20060320
  24. ABILIFY [Concomitant]
     Indication: AFFECTIVE DISORDER
     Dosage: 5-10 MG, DAILY
     Dates: start: 20060414
  25. NAPROXEN [Concomitant]
     Dates: start: 20060731
  26. TRAZODONE HCL [Concomitant]
     Dates: start: 20061219
  27. INDOMETHACIN [Concomitant]
     Dosage: 25 MG, ONE OR TWO, THREE TIMES A DAY
     Route: 048
     Dates: start: 20060731
  28. PROCHLORPERAZINE [Concomitant]
     Dosage: 1-5
     Dates: start: 20060320

REACTIONS (4)
  - DIABETES MELLITUS [None]
  - DIABETES MELLITUS INADEQUATE CONTROL [None]
  - DIABETIC NEUROPATHY [None]
  - NEUROPATHY PERIPHERAL [None]
